FAERS Safety Report 23593527 (Version 1)
Quarter: 2024Q1

REPORT INFORMATION
  Report Type: Spontaneous
  Country: US (occurrence: US)
  Receive Date: 20240304
  Receipt Date: 20240304
  Transmission Date: 20240410
  Serious: No
  Sender: FDA-Public Use
  Company Number: US-BAUSCHBL-2024BNL002436

PATIENT
  Age: 68 Year
  Sex: Female

DRUGS (2)
  1. TIMOPTIC [Suspect]
     Active Substance: TIMOLOL MALEATE
     Indication: Postoperative care
     Route: 047
     Dates: start: 202310
  2. TIMOPTIC [Suspect]
     Active Substance: TIMOLOL MALEATE
     Route: 047
     Dates: start: 202312

REACTIONS (5)
  - Intraocular pressure increased [Unknown]
  - Eye haemorrhage [Unknown]
  - Reaction to preservatives [Unknown]
  - Intentional product use issue [Unknown]
  - Product use in unapproved indication [Unknown]

NARRATIVE: CASE EVENT DATE: 20231001
